FAERS Safety Report 17719407 (Version 1)
Quarter: 2020Q2

REPORT INFORMATION
  Report Type: Spontaneous
  Country: US (occurrence: US)
  Receive Date: 20200428
  Receipt Date: 20200428
  Transmission Date: 20200714
  Serious: No
  Sender: FDA-Public Use
  Company Number: US-ABBVIE-20K-163-3275064-00

PATIENT
  Sex: Male

DRUGS (1)
  1. SKYRIZI [Suspect]
     Active Substance: RISANKIZUMAB-RZAA
     Indication: PRODUCT USED FOR UNKNOWN INDICATION
     Dosage: PT RECEIVED ONLY 1 DOSE. UNKNOWN IF THEY GOT THE 2 INJECTION LOADING DOSE.
     Route: 058

REACTIONS (2)
  - Condition aggravated [Unknown]
  - Dyspnoea [Unknown]
